FAERS Safety Report 26063620 (Version 1)
Quarter: 2025Q4

REPORT INFORMATION
  Report Type: Report from Study
  Country: AE (occurrence: AE)
  Receive Date: 20251119
  Receipt Date: 20251119
  Transmission Date: 20260118
  Serious: Yes (Hospitalization)
  Sender: DAIICHI
  Company Number: AE-AstraZeneca-CH-00990187A

PATIENT
  Sex: Female

DRUGS (1)
  1. ENHERTU [Suspect]
     Active Substance: FAM-TRASTUZUMAB DERUXTECAN-NXKI
     Indication: Breast cancer
     Dosage: 360 MG, ONCE EVERY 3 WK
     Route: 042
     Dates: start: 202401

REACTIONS (5)
  - Viral infection [Recovering/Resolving]
  - Hypotension [Recovering/Resolving]
  - Chest discomfort [Recovering/Resolving]
  - Pain [Recovering/Resolving]
  - Dyspnoea [Recovering/Resolving]

NARRATIVE: CASE EVENT DATE: 20251101
